FAERS Safety Report 10281384 (Version 1)
Quarter: 2014Q3

REPORT INFORMATION
  Report Type: Spontaneous
  Country: DE (occurrence: DE)
  Receive Date: 20140707
  Receipt Date: 20140707
  Transmission Date: 20150326
  Serious: Yes (Other)
  Sender: FDA-Public Use
  Company Number: DE-MYLANLABS-2014S1015018

PATIENT
  Sex: Female
  Weight: 72 kg

DRUGS (6)
  1. CITALOPRAM [Suspect]
     Active Substance: CITALOPRAM HYDROBROMIDE
     Indication: DEPRESSION
     Dosage: 20 [MG/D ]
     Route: 048
     Dates: start: 20130502, end: 20140127
  2. L-THYROXIN [Concomitant]
     Active Substance: LEVOTHYROXINE SODIUM
     Indication: HYPOTHYROIDISM
     Dosage: 100 [?G/D ], 0. - 38.4. GESTATIONAL WEEK
     Route: 048
     Dates: start: 20130502, end: 20140127
  3. OMEPRAZOLE. [Concomitant]
     Active Substance: OMEPRAZOLE
     Indication: GASTRITIS PROPHYLAXIS
     Dosage: 27. - 38.4. GESTATIONAL WEEK
     Route: 048
  4. RENNIE /00108001/ [Concomitant]
     Indication: DYSPEPSIA
     Dosage: 0. - 38.4. GESTATIONAL WEEK
     Route: 048
     Dates: start: 20130502, end: 20140127
  5. IBUPROFEN LYSINATE [Concomitant]
     Active Substance: IBUPROFEN
     Indication: HEADACHE
     Dosage: 500 [MG/D ]/ ON DEMAND, 8.1. - 27. GESTATIONAL WEEK
     Route: 048
  6. FOLIO FORTE [Concomitant]
     Active Substance: FOLIC ACID\VITAMINS
     Indication: PROPHYLAXIS OF NEURAL TUBE DEFECT
     Dosage: 0.8 [MG/D ], 0. - 38.4. GESTATIONAL WEEK
     Route: 048
     Dates: start: 20130502, end: 20140127

REACTIONS (1)
  - HELLP syndrome [Recovered/Resolved]
